FAERS Safety Report 13475606 (Version 10)
Quarter: 2019Q1

REPORT INFORMATION
  Report Type: Spontaneous
  Country: JP (occurrence: JP)
  Receive Date: 20170425
  Receipt Date: 20190221
  Transmission Date: 20190417
  Serious: Yes (Death, Hospitalization, Other)
  Sender: FDA-Public Use
  Company Number: JP-009507513-1704JPN001751J

PATIENT
  Age: 69 Year
  Sex: Female
  Weight: 37 kg

DRUGS (16)
  1. CALONAL [Concomitant]
     Active Substance: ACETAMINOPHEN
     Indication: LUNG ADENOCARCINOMA
     Dosage: 500.0 MG, QID
     Route: 048
  2. CRESTOR [Concomitant]
     Active Substance: ROSUVASTATIN CALCIUM
     Dosage: 2.5 MG, QD
     Route: 048
  3. MAGMITT [Concomitant]
     Active Substance: MAGNESIUM OXIDE
     Dosage: 660.0 MG, TID
     Route: 048
  4. DENOTAS [Concomitant]
     Active Substance: CALCIUM CARBONATE\CHOLECALCIFEROL\MAGNESIUM CARBONATE
     Indication: LUNG ADENOCARCINOMA
     Dosage: 2.0 DF, QD
     Route: 048
  5. MUCODYNE [Concomitant]
     Active Substance: CARBOCYSTEINE
     Indication: LUNG ADENOCARCINOMA
     Dosage: 500.0 MG, TID
     Route: 048
     Dates: start: 20170324
  6. AMITIZA [Concomitant]
     Active Substance: LUBIPROSTONE
     Dosage: 24.0 MICROL, BID
     Route: 048
  7. AMLODIPINE [Concomitant]
     Active Substance: AMLODIPINE BESYLATE
     Dosage: 5.0 MG, QD
     Route: 048
  8. OXYCONTIN [Concomitant]
     Active Substance: OXYCODONE HYDROCHLORIDE
     Indication: LUNG ADENOCARCINOMA
     Dosage: 25.0 MG, BID
     Route: 048
  9. TAKECAB [Concomitant]
     Active Substance: VONOPRAZAN FUMURATE
     Dosage: 10.0 MG, QD
     Route: 048
  10. BELSOMRA [Concomitant]
     Active Substance: SUVOREXANT
     Dosage: 15 MG, QD
     Route: 048
  11. LYRICA [Concomitant]
     Active Substance: PREGABALIN
     Dosage: 25.0 MG, BID
     Route: 048
  12. LOXONIN [Concomitant]
     Active Substance: LOXOPROFEN SODIUM
     Indication: LUNG ADENOCARCINOMA
     Dosage: 60.0 MG, TID
     Route: 048
  13. KEYTRUDA [Suspect]
     Active Substance: PEMBROLIZUMAB
     Indication: LUNG ADENOCARCINOMA
     Dosage: 200 MILLIGRAM, Q3W
     Route: 041
     Dates: start: 20170322, end: 20170414
  14. LASIX [Concomitant]
     Active Substance: FUROSEMIDE
     Dosage: 20 MG, QD
     Route: 048
  15. LENDORMIN [Concomitant]
     Active Substance: BROTIZOLAM
     Dosage: 5 MG, QD
     Route: 048
  16. ETIZOLAM [Concomitant]
     Active Substance: ETIZOLAM
     Dosage: 5 MG, TID
     Route: 048

REACTIONS (6)
  - Interstitial lung disease [Recovering/Resolving]
  - Herpes zoster [Recovered/Resolved]
  - Malignant neoplasm progression [Fatal]
  - Pulmonary function test abnormal [Recovered/Resolved]
  - Pneumonia bacterial [Recovered/Resolved]
  - Chronic obstructive pulmonary disease [Recovering/Resolving]

NARRATIVE: CASE EVENT DATE: 2017
